FAERS Safety Report 11197176 (Version 4)
Quarter: 2020Q3

REPORT INFORMATION
  Report Type: Spontaneous
  Country: US (occurrence: US)
  Receive Date: 20150617
  Receipt Date: 20200824
  Transmission Date: 20201102
  Serious: No
  Sender: FDA-Public Use
  Company Number: US-SA-2014SA087746

PATIENT

DRUGS (2)
  1. CEREZYME [Suspect]
     Active Substance: IMIGLUCERASE
     Indication: FABRY^S DISEASE
     Dosage: 45.62 DF,QOW
     Route: 042
  2. CEREZYME [Suspect]
     Active Substance: IMIGLUCERASE
     Indication: GAUCHER^S DISEASE
     Dosage: 2400 U, Q3W
     Route: 058
     Dates: start: 20150513

REACTIONS (9)
  - Hypotension [Not Recovered/Not Resolved]
  - Product use in unapproved indication [Unknown]
  - Neuralgia [Not Recovered/Not Resolved]
  - Nerve compression [Not Recovered/Not Resolved]
  - Product dose omission issue [Unknown]
  - Antinuclear antibody positive [Not Recovered/Not Resolved]
  - Inappropriate schedule of product administration [Unknown]
  - Malaise [Not Recovered/Not Resolved]
  - Fatigue [Not Recovered/Not Resolved]
